FAERS Safety Report 19555594 (Version 2)
Quarter: 2021Q3

REPORT INFORMATION
  Report Type: Other
  Country: FR (occurrence: FR)
  Receive Date: 20210715
  Receipt Date: 20210927
  Transmission Date: 20211014
  Serious: Yes (Other)
  Sender: FDA-Public Use
  Company Number: FR-KNIGHT THERAPEUTICS (USA) INC.-2113867

PATIENT
  Age: 55 Year
  Sex: Male

DRUGS (7)
  1. IMPAVIDO [Suspect]
     Active Substance: MILTEFOSINE
     Indication: MUCOCUTANEOUS LEISHMANIASIS
  2. PREDNISOLONE. [Concomitant]
     Active Substance: PREDNISOLONE
  3. CERTOLIZUMAB [Concomitant]
     Active Substance: CERTOLIZUMAB
  4. TRIAMCINOLONE HEXACETONIDE [Concomitant]
     Active Substance: TRIAMCINOLONE HEXACETONIDE
     Route: 014
  5. METHOTREXATE. [Concomitant]
     Active Substance: METHOTREXATE
  6. AMPHOTERICIN B. [Concomitant]
     Active Substance: AMPHOTERICIN B
  7. LAMB. [Concomitant]
     Active Substance: LAMB

REACTIONS (3)
  - Cough [Not Recovered/Not Resolved]
  - Nausea [Not Recovered/Not Resolved]
  - Off label use [None]
